FAERS Safety Report 4735868-2 (Version None)
Quarter: 2005Q3

REPORT INFORMATION
  Report Type: 
  Country: None (occurrence: None)
  Receive Date: 20050805
  Receipt Date: 20050802
  Transmission Date: 20060218
  Serious: Yes (Death)
  Sender: FDA-Public Use
  Company Number: US-JNJFOC-20050203017

PATIENT
  Sex: Male

DRUGS (4)
  1. DURAGESIC-100 [Suspect]
     Route: 062
     Dates: end: 20041004
  2. CITALOPRAM [Concomitant]
  3. HYDROCODONE [Concomitant]
  4. CANNABINOIDS [Concomitant]

REACTIONS (4)
  - APPLICATION SITE IRRITATION [None]
  - DRUG ABUSER [None]
  - DRUG TOXICITY [None]
  - MULTIPLE DRUG OVERDOSE ACCIDENTAL [None]
